FAERS Safety Report 9838567 (Version 2)
Quarter: 2014Q1

REPORT INFORMATION
  Report Type: Spontaneous
  Country: AR (occurrence: AR)
  Receive Date: 20140123
  Receipt Date: 20140127
  Transmission Date: 20141002
  Serious: Yes (Other)
  Sender: FDA-Public Use
  Company Number: AR-PFIZER INC-2014020945

PATIENT
  Age: 68 Year
  Sex: Male
  Weight: 76 kg

DRUGS (4)
  1. AMLOC [Suspect]
     Dosage: 5 MG, UNK
     Dates: start: 1991
  2. CITRAMAG [Concomitant]
     Dosage: UNK
  3. ALPLAX [Concomitant]
     Dosage: 0.5 MG, 1X/DAY
  4. ASPIRINA [Concomitant]
     Dosage: 10 MG, 1X/DAY

REACTIONS (1)
  - Gingival abscess [Not Recovered/Not Resolved]
